FAERS Safety Report 18967339 (Version 5)
Quarter: 2025Q1

REPORT INFORMATION
  Report Type: Spontaneous
  Country: US (occurrence: US)
  Receive Date: 20210304
  Receipt Date: 20250205
  Transmission Date: 20250409
  Serious: Yes (Hospitalization, Other)
  Sender: NOVO NORDISK
  Company Number: US-NOVOPROD-790521

PATIENT
  Sex: Female

DRUGS (3)
  1. NOVOLOG [Suspect]
     Active Substance: INSULIN ASPART
     Route: 058
  2. NOVOLOG [Suspect]
     Active Substance: INSULIN ASPART
     Indication: Type 1 diabetes mellitus
     Route: 058
  3. NOVOLOG [Suspect]
     Active Substance: INSULIN ASPART
     Route: 058
     Dates: end: 202007

REACTIONS (12)
  - Near death experience [Unknown]
  - Abdominal discomfort [Unknown]
  - Vomiting [Unknown]
  - Road traffic accident [Unknown]
  - Confusional state [Unknown]
  - Concussion [Unknown]
  - Injury [Unknown]
  - Diabetic ketoacidosis [Unknown]
  - Intentional dose omission [Unknown]
  - Blood glucose increased [Unknown]
  - Blood glucose decreased [Unknown]
  - Diabetes mellitus inadequate control [Unknown]
